FAERS Safety Report 9523112 (Version 3)
Quarter: 2013Q4

REPORT INFORMATION
  Report Type: Report from Study
  Country: US (occurrence: US)
  Receive Date: 20130913
  Receipt Date: 20131029
  Transmission Date: 20140711
  Serious: Yes (Hospitalization)
  Sender: FDA-Public Use
  Company Number: US-BRISTOL-MYERS SQUIBB COMPANY-19391770

PATIENT
  Age: 72 Year
  Sex: Female
  Weight: 69.75 kg

DRUGS (22)
  1. PACLITAXEL [Suspect]
     Indication: NON-SMALL CELL LUNG CANCER
     Route: 042
     Dates: start: 20130723
  2. CARBOPLATIN [Suspect]
     Indication: NON-SMALL CELL LUNG CANCER
     Dosage: AUC 6
     Dates: start: 20130723
  3. NECITUMUMAB [Suspect]
     Indication: NON-SMALL CELL LUNG CANCER
     Dosage: D1 AND D8 EVERY 3 WEEK ONCE
     Route: 042
     Dates: start: 20130716
  4. ASPIRIN [Concomitant]
     Dates: start: 1997
  5. ALENDRONATE [Concomitant]
     Dates: start: 2008
  6. ATENOLOL [Concomitant]
     Dates: start: 1996
  7. LISINOPRIL [Concomitant]
     Dates: start: 2011
  8. NITROGLYCERINE [Concomitant]
  9. CETRIZINE [Concomitant]
     Dates: start: 201304
  10. LORAZEPAM [Concomitant]
     Dates: start: 2008
  11. FLUOXETINE [Concomitant]
     Dosage: ONGOING
     Dates: start: 2008
  12. SIMVASTATIN [Concomitant]
     Dosage: ONGOING
     Dates: start: 1996
  13. VENTOLIN [Concomitant]
     Dosage: ONGOING
     Dates: start: 2008
  14. TYLENOL [Concomitant]
  15. DEXAMETHASONE [Concomitant]
     Dates: start: 20130715
  16. EUCERIN [Concomitant]
     Dates: start: 20130701
  17. SOLU-CORTEF [Concomitant]
     Dates: start: 20130716
  18. CLINDAMYCIN [Concomitant]
     Dates: start: 20130716
  19. HYDROCORTISONE [Concomitant]
     Dates: start: 20130716
  20. COMPAZINE [Concomitant]
     Dates: start: 20130716
  21. HYDROCODONE BITARTRATE [Concomitant]
     Dates: start: 20130730
  22. ACETAMINOPHEN [Concomitant]
     Dates: start: 20130730

REACTIONS (1)
  - Hypomagnesaemia [Recovering/Resolving]
